FAERS Safety Report 7809122-6 (Version None)
Quarter: 2011Q4

REPORT INFORMATION
  Report Type: 
  Country: None (occurrence: None)
  Receive Date: 20111007
  Receipt Date: 20110926
  Transmission Date: 20120403
  Serious: Yes (Other)
  Sender: FDA-Public Use
  Company Number: 1060217

PATIENT
  Age: 3 Year

DRUGS (3)
  1. (CORTICOSTEROIDS FOR SYSTEMIC USE) [Suspect]
     Indication: ACUTE LYMPHOCYTIC LEUKAEMIA
  2. HYDROCORTISONE [Suspect]
     Indication: ACUTE LYMPHOCYTIC LEUKAEMIA
     Dosage: INTRATHECAL
     Route: 037
  3. (CHEMOTHERAPEUTICS) [Concomitant]

REACTIONS (1)
  - EPIDURAL LIPOMATOSIS [None]
